FAERS Safety Report 7818038-0 (Version None)
Quarter: 2011Q4

REPORT INFORMATION
  Report Type: 
  Country: None (occurrence: None)
  Receive Date: 20111017
  Receipt Date: 20111005
  Transmission Date: 20120403
  Serious: Yes (Hospitalization)
  Sender: FDA-Public Use
  Company Number: JP-SANOFI-AVENTIS-2011SA067380

PATIENT
  Age: 90 Year
  Sex: Female

DRUGS (2)
  1. GLYBURIDE [Suspect]
     Route: 065
  2. PIOGLITAZONE [Suspect]
     Route: 065

REACTIONS (2)
  - ALTERED STATE OF CONSCIOUSNESS [None]
  - HYPOGLYCAEMIC ENCEPHALOPATHY [None]
